FAERS Safety Report 15814428 (Version 3)
Quarter: 2019Q1

REPORT INFORMATION
  Report Type: Report from Study
  Country: US (occurrence: US)
  Receive Date: 20190111
  Receipt Date: 20190220
  Transmission Date: 20190417
  Serious: Yes (Hospitalization, Other)
  Sender: FDA-Public Use
  Company Number: US-GILEAD-2019-0384508

PATIENT
  Age: 77 Year
  Sex: Female

DRUGS (5)
  1. MORPHINE SULFATE. [Concomitant]
     Active Substance: MORPHINE SULFATE
  2. ZYRTEC [Concomitant]
     Active Substance: CETIRIZINE HYDROCHLORIDE
  3. AMBRISENTAN [Suspect]
     Active Substance: AMBRISENTAN
     Indication: PORTAL HYPERTENSION
     Dosage: 10 MG, QD
     Route: 065
     Dates: start: 20170315, end: 20190213
  4. TOPIRAMATE. [Concomitant]
     Active Substance: TOPIRAMATE
  5. LYRICA [Concomitant]
     Active Substance: PREGABALIN

REACTIONS (5)
  - Sinus congestion [Not Recovered/Not Resolved]
  - Intestinal obstruction [Unknown]
  - Diarrhoea [Not Recovered/Not Resolved]
  - Hypoacusis [Not Recovered/Not Resolved]
  - Middle ear effusion [Not Recovered/Not Resolved]
